FAERS Safety Report 10097472 (Version 2)
Quarter: 2014Q2

REPORT INFORMATION
  Report Type: Report from Study
  Country: DE (occurrence: DE)
  Receive Date: 20140423
  Receipt Date: 20140428
  Transmission Date: 20141212
  Serious: Yes (Death)
  Sender: FDA-Public Use
  Company Number: DE-AMGEN INC.-DEUCT2014029055

PATIENT
  Age: 64 Year
  Sex: Male

DRUGS (4)
  1. ETANERCEPT [Suspect]
     Indication: PSORIASIS
     Dosage: 75 MG, UNK
     Route: 065
     Dates: start: 20090609, end: 20100111
  2. METHOTREXATE SODIUM [Concomitant]
     Indication: PSORIASIS
     Dosage: UNK
     Dates: start: 20091104, end: 20100108
  3. USTEKINUMAB [Concomitant]
     Indication: PSORIASIS
     Dosage: 45 MG, UNK
     Dates: start: 20100224, end: 20120226
  4. CICLOSPORIN HEXAL [Concomitant]
     Dosage: UNK
     Dates: start: 20120227

REACTIONS (1)
  - Death [Fatal]
